FAERS Safety Report 25919330 (Version 1)
Quarter: 2025Q4

REPORT INFORMATION
  Report Type: Spontaneous
  Country: US (occurrence: US)
  Receive Date: 20251014
  Receipt Date: 20251014
  Transmission Date: 20260118
  Serious: No
  Sender: KALVISTA PHARMACEUTICALS
  Company Number: US-KP-00081

PATIENT
  Age: 72 Year
  Sex: Female
  Weight: 66.678 kg

DRUGS (9)
  1. EKTERLY [Suspect]
     Active Substance: SEBETRALSTAT
     Indication: Hereditary angioedema
     Dosage: TIME INTERVAL: AS NECESSARY
     Route: 048
     Dates: start: 20250825
  2. MAGNESIUM [Concomitant]
     Active Substance: MAGNESIUM
  3. PREDNISONE [Concomitant]
     Active Substance: PREDNISONE
  4. PENICILLIN G POTASSIUM [Concomitant]
     Active Substance: PENICILLIN G POTASSIUM
  5. ICATIBANT [Concomitant]
     Active Substance: ICATIBANT ACETATE
  6. VITAMIN C [Concomitant]
     Active Substance: ASCORBIC ACID
  7. VALSARTAN [Concomitant]
     Active Substance: VALSARTAN
  8. PROBIOTICS NOS [Concomitant]
     Active Substance: PROBIOTICS NOS
  9. VITAMINS [Concomitant]
     Active Substance: VITAMINS

REACTIONS (1)
  - Nasopharyngitis [Unknown]

NARRATIVE: CASE EVENT DATE: 20250917
